FAERS Safety Report 14721197 (Version 5)
Quarter: 2018Q2

REPORT INFORMATION
  Report Type: Spontaneous
  Country: US (occurrence: US)
  Receive Date: 20180405
  Receipt Date: 20180517
  Transmission Date: 20180711
  Serious: Yes (Life-Threatening, Other)
  Sender: FDA-Public Use
  Company Number: US-PFIZER INC-2018135452

PATIENT
  Age: 73 Year
  Sex: Female
  Weight: 63.5 kg

DRUGS (1)
  1. ADVIL [Suspect]
     Active Substance: IBUPROFEN
     Indication: ARTHRITIS
     Dosage: 200 MG, SINGLE (ONE LIQUIGEL MINI)
     Route: 048
     Dates: start: 20180328, end: 20180328

REACTIONS (6)
  - Choking [Recovering/Resolving]
  - Product size issue [Recovering/Resolving]
  - Drug ineffective [Unknown]
  - Asthenia [Not Recovered/Not Resolved]
  - Foreign body in respiratory tract [Recovering/Resolving]
  - Dysphonia [Recovering/Resolving]

NARRATIVE: CASE EVENT DATE: 20180328
